FAERS Safety Report 13410666 (Version 2)
Quarter: 2017Q4

REPORT INFORMATION
  Report Type: Spontaneous
  Country: US (occurrence: US)
  Receive Date: 20170406
  Receipt Date: 20171123
  Transmission Date: 20180320
  Serious: No
  Sender: FDA-Public Use
  Company Number: US-JNJFOC-20170300100

PATIENT
  Age: 15 Year
  Sex: Male

DRUGS (2)
  1. RISPERDAL [Suspect]
     Active Substance: RISPERIDONE
     Indication: ATTENTION DEFICIT/HYPERACTIVITY DISORDER
     Dosage: AT VARIOUS DOSE OF 0.5 MG, 0.75 MG, 1 MG, 1.5 MG, 1.25 MG, 2 MG AND 4 MG
     Route: 048
     Dates: start: 20030628, end: 20050116
  2. RISPERDAL [Suspect]
     Active Substance: RISPERIDONE
     Indication: MAJOR DEPRESSION
     Dosage: AT VARIOUS DOSE OF 0.5 MG, 0.75 MG, 1 MG, 1.5 MG, 1.25 MG, 2 MG AND 4 MG
     Route: 048
     Dates: start: 20030628, end: 20050116

REACTIONS (4)
  - Gynaecomastia [Unknown]
  - Product use in unapproved indication [Unknown]
  - Emotional disorder [Unknown]
  - Off label use [Unknown]

NARRATIVE: CASE EVENT DATE: 20030628
